FAERS Safety Report 9985421 (Version 1)
Quarter: 2014Q1

REPORT INFORMATION
  Report Type: Report from Study
  Country: US (occurrence: US)
  Receive Date: 20140307
  Receipt Date: 20140307
  Transmission Date: 20141002
  Serious: No
  Sender: FDA-Public Use
  Company Number: US-ABBVIE-14P-163-1185874-00

PATIENT
  Age: 48 Year
  Sex: Female

DRUGS (6)
  1. HUMIRA [Suspect]
     Indication: CROHN^S DISEASE
     Dates: start: 20131121, end: 20131121
  2. HUMIRA [Suspect]
     Dates: start: 20131205, end: 20131205
  3. CLARITIN [Concomitant]
     Indication: SINUS DISORDER
  4. BENADRYL [Concomitant]
     Indication: SINUS DISORDER
  5. VALTREX [Concomitant]
     Indication: ORAL HERPES
  6. OMEPRAZOLE [Concomitant]
     Indication: PRODUCT USED FOR UNKNOWN INDICATION

REACTIONS (2)
  - Drug dose omission [Unknown]
  - Eye infection [Not Recovered/Not Resolved]
